FAERS Safety Report 7898516-9 (Version None)
Quarter: 2011Q4

REPORT INFORMATION
  Report Type: 
  Country: None (occurrence: None)
  Receive Date: 20111107
  Receipt Date: 20111101
  Transmission Date: 20120403
  Serious: Yes (Life-Threatening, Hospitalization, Other)
  Sender: FDA-Public Use
  Company Number: US-BAYER-201032832NA

PATIENT
  Age: 29 Year
  Sex: Female
  Weight: 64.399 kg

DRUGS (13)
  1. FLUCONAZOLE [Concomitant]
     Dosage: 150 MG, UNK
  2. PRILOSEC [Concomitant]
     Dosage: 20 MG, QD
     Route: 048
  3. WELLBUTRIN SR [Concomitant]
     Dosage: 150 MG, QD
     Route: 048
  4. MORPHINE [Concomitant]
     Indication: PAIN
  5. MORPHINE [Concomitant]
     Indication: NAUSEA
  6. ZOFRAN [Concomitant]
     Indication: PAIN
  7. CLINDAMYCIN HCL [Concomitant]
     Dosage: UNK
     Dates: start: 20090831
  8. OXYCODONE HCL AND ACETAMINOPHEN [Concomitant]
     Dosage: UNK
     Dates: start: 20090904
  9. PROMETHAZINE [Concomitant]
     Dosage: 25 MG, UNK
     Dates: start: 20090904
  10. YAZ [Suspect]
     Indication: PREMENSTRUAL SYNDROME
  11. HYDROCODONE BITARTRATE AND ACETAMINOPHEN [Concomitant]
     Dosage: UNK
     Dates: start: 20090925
  12. YAZ [Suspect]
     Indication: CONTRACEPTION
     Dosage: UNK UNK, QD
     Route: 048
     Dates: start: 20080101, end: 20100101
  13. ZOFRAN [Concomitant]
     Indication: NAUSEA

REACTIONS (3)
  - INJURY [None]
  - GALLBLADDER NON-FUNCTIONING [None]
  - CHOLECYSTITIS CHRONIC [None]
